FAERS Safety Report 10649784 (Version 1)
Quarter: 2014Q4

REPORT INFORMATION
  Report Type: Spontaneous
  Country: US (occurrence: US)
  Receive Date: 20141212
  Receipt Date: 20141212
  Transmission Date: 20150529
  Serious: No
  Sender: FDA-Public Use
  Company Number: US-TEVA-528423USA

PATIENT
  Age: 40 Year
  Sex: Female
  Weight: 59.47 kg

DRUGS (1)
  1. PARAGARD T380A [Suspect]
     Active Substance: COPPER
     Indication: CONTRACEPTION
     Route: 015
     Dates: start: 20141117, end: 20141117

REACTIONS (1)
  - Pain [Unknown]

NARRATIVE: CASE EVENT DATE: 20141117
